FAERS Safety Report 15416439 (Version 2)
Quarter: 2018Q4

REPORT INFORMATION
  Report Type: Spontaneous
  Country: ZA (occurrence: ZA)
  Receive Date: 20180924
  Receipt Date: 20181005
  Transmission Date: 20190204
  Serious: Yes (Death)
  Sender: FDA-Public Use
  Company Number: PHHY2018ZA105217

PATIENT
  Age: 76 Year
  Sex: Male

DRUGS (2)
  1. GLICLAZIDE SANDOZ [Suspect]
     Active Substance: GLICLAZIDE
     Indication: DIABETES MELLITUS
     Dosage: 80 MG, UNK
     Route: 048
     Dates: start: 201804
  2. BISOHEXAL [Suspect]
     Active Substance: BISOPROLOL FUMARATE
     Indication: HYPERTENSION
     Dosage: 5 MG, UNK
     Route: 048
     Dates: start: 201806

REACTIONS (1)
  - Neoplasm malignant [Fatal]
